FAERS Safety Report 17088165 (Version 1)
Quarter: 2019Q4

REPORT INFORMATION
  Report Type: Spontaneous
  Country: US (occurrence: US)
  Receive Date: 20191128
  Receipt Date: 20191128
  Transmission Date: 20200122
  Serious: Yes (Other)
  Sender: FDA-Public Use
  Company Number: US-CHEPLA-C20193105

PATIENT
  Age: 66 Year
  Sex: Female
  Weight: 81.72 kg

DRUGS (1)
  1. XENICAL [Suspect]
     Active Substance: ORLISTAT
     Indication: PROCTITIS ULCERATIVE
     Route: 048
     Dates: start: 1990, end: 201905

REACTIONS (5)
  - Ulcer haemorrhage [Not Recovered/Not Resolved]
  - Product use in unapproved indication [Unknown]
  - Deafness unilateral [Not Recovered/Not Resolved]
  - Cerebrovascular accident [Recovered/Resolved]
  - Cataract [Not Recovered/Not Resolved]

NARRATIVE: CASE EVENT DATE: 201905
